FAERS Safety Report 7324145-1 (Version None)
Quarter: 2011Q1

REPORT INFORMATION
  Report Type: 
  Country: None (occurrence: None)
  Receive Date: 20110217
  Receipt Date: 20110202
  Transmission Date: 20110831
  Serious: Yes (Hospitalization, Other)
  Sender: FDA-Public Use
  Company Number: 026772

PATIENT
  Sex: Female

DRUGS (3)
  1. CIMZIA [Suspect]
     Indication: CROHN'S DISEASE
     Dosage: (SUBCUTANEOUS)
     Route: 058
     Dates: start: 20090601
  2. BENADRYL [Concomitant]
  3. TYLENOL (CAPLET) [Concomitant]

REACTIONS (6)
  - VOMITING [None]
  - RESUSCITATION [None]
  - BLOOD GLUCOSE DECREASED [None]
  - NAUSEA [None]
  - HEARING IMPAIRED [None]
  - HYPOTENSION [None]
